FAERS Safety Report 24022135 (Version 1)
Quarter: 2024Q2

REPORT INFORMATION
  Report Type: Spontaneous
  Country: DE (occurrence: DE)
  Receive Date: 20240627
  Receipt Date: 20240627
  Transmission Date: 20240716
  Serious: No
  Sender: FDA-Public Use
  Company Number: DE-ROCHE-3479272

PATIENT
  Age: 80 Year
  Sex: Male

DRUGS (1)
  1. VABYSMO [Suspect]
     Active Substance: FARICIMAB\FARICIMAB-SVOA
     Indication: Macular degeneration
     Dosage: ON 14/DEC/2023, HE TOOK THE LAST DOSE OF FARICIMAB. HE TOOK TOTAL OF 5 VABYSMO INJECTIONS PRIOR TO E
     Route: 065
     Dates: start: 20230626

REACTIONS (2)
  - Iritis [Recovered/Resolved]
  - Uveitis [Recovered/Resolved]

NARRATIVE: CASE EVENT DATE: 20231219
